FAERS Safety Report 15714600 (Version 1)
Quarter: 2018Q4

REPORT INFORMATION
  Report Type: Spontaneous
  Country: MX (occurrence: MX)
  Receive Date: 20181212
  Receipt Date: 20181212
  Transmission Date: 20190205
  Serious: Yes (Hospitalization)
  Sender: FDA-Public Use
  Company Number: MX-TERSERA THERAPEUTICS LLC-TSR2018002710

PATIENT

DRUGS (3)
  1. BIPERIDENO                         /00079501/ [Concomitant]
     Indication: PARKINSONISM
     Dosage: EVERY DAY
     Route: 048
     Dates: start: 20180813
  2. LEVOTIROXIN [Concomitant]
     Active Substance: LEVOTHYROXINE SODIUM
     Indication: HYPOTHYROIDISM
     Dosage: 10 MICROGRAM, UNK
     Route: 048
     Dates: start: 20130601, end: 20180723
  3. ZOLADEX [Suspect]
     Active Substance: GOSERELIN ACETATE
     Indication: HAEMORRHAGE
     Dosage: 3.6UG UNKNOWN
     Route: 058
     Dates: start: 20180723, end: 20180723

REACTIONS (2)
  - Parkinsonism [Unknown]
  - Drug interaction [Unknown]

NARRATIVE: CASE EVENT DATE: 20180725
